FAERS Safety Report 6271944-3 (Version None)
Quarter: 2009Q3

REPORT INFORMATION
  Report Type: 
  Country: None (occurrence: None)
  Receive Date: 20090717
  Receipt Date: 20071016
  Transmission Date: 20100115
  Serious: Yes (Hospitalization)
  Sender: FDA-Public Use
  Company Number: US-ASTRAZENECA-2007UW11102

PATIENT
  Age: 409 Month
  Sex: Female
  Weight: 87.4 kg

DRUGS (43)
  1. SEROQUEL [Suspect]
     Indication: SCHIZOPHRENIA
     Dosage: 25 MG - 1200 MG
     Route: 048
     Dates: start: 20010114
  2. SEROQUEL [Suspect]
     Route: 048
     Dates: start: 20020801, end: 20020831
  3. SEROQUEL [Suspect]
     Route: 048
     Dates: start: 20020820, end: 20020919
  4. SEROQUEL [Suspect]
     Dosage: 350MG TO 600MG
     Route: 048
     Dates: start: 20030123, end: 20030406
  5. SEROQUEL [Suspect]
     Route: 048
     Dates: start: 20030408, end: 20030507
  6. SEROQUEL [Suspect]
     Route: 048
     Dates: start: 20030522, end: 20030621
  7. SEROQUEL [Suspect]
     Route: 048
     Dates: start: 20030703, end: 20030828
  8. SEROQUEL [Suspect]
     Dosage: 100MG AND 250MG
     Route: 048
     Dates: start: 20030830, end: 20031006
  9. SEROQUEL [Suspect]
     Route: 048
     Dates: start: 20030901, end: 20060508
  10. RISPERDAL [Concomitant]
  11. RISPERDAL [Concomitant]
     Dosage: 1.5 MG - 2.0 MG DAILY
     Route: 048
  12. ZYPREXA [Concomitant]
  13. CLOZARIL [Concomitant]
  14. GEODON [Concomitant]
  15. GEODON [Concomitant]
     Dosage: 20 MG - 160 MG DAILY
     Route: 048
  16. HALDOL [Concomitant]
     Indication: AGITATION
  17. HALDOL [Concomitant]
     Dosage: 2 MG - 10 MG DAILY
     Route: 048
  18. NAVANE [Concomitant]
  19. KLONOPIN [Concomitant]
     Dosage: 0.5 MG  - 5 MG DAILY
     Route: 048
  20. PROTONIX [Concomitant]
     Route: 048
  21. THORAZINE [Concomitant]
     Route: 048
  22. TRILEPTAL [Concomitant]
  23. TEGRETOL [Concomitant]
     Route: 048
  24. AMBIEN [Concomitant]
     Route: 048
  25. TRICOR [Concomitant]
     Dosage: 48 MG - 145 MG DAILY
     Route: 048
  26. LIPITOR [Concomitant]
     Route: 048
  27. RESTORIL [Concomitant]
     Indication: INSOMNIA
     Route: 048
  28. ZOLOFT [Concomitant]
     Dosage: 75 MG - 100 MG DAILY
     Route: 048
  29. VISTARIL [Concomitant]
     Route: 048
  30. DEPAKOTE [Concomitant]
     Dosage: 250 MG - 500 MG DAILY
     Route: 048
  31. PAXIL [Concomitant]
  32. PREVACID [Concomitant]
     Route: 048
  33. NEURONTIN [Concomitant]
     Dosage: 300 MG - 1200 MG DAILY
     Route: 048
  34. COGENTIN [Concomitant]
     Indication: EXTRAPYRAMIDAL DISORDER
     Dosage: 0.5 MG - 1 MG DAILY
     Route: 048
  35. SYNTHROID [Concomitant]
     Route: 048
  36. GLUCOPHAGE [Concomitant]
     Dosage: 500 MG - 1000 MG DAILY
     Route: 048
  37. ATIVAN [Concomitant]
     Indication: AGITATION
     Route: 048
  38. NEXIUM [Concomitant]
     Route: 048
  39. PARLODEL [Concomitant]
     Route: 048
  40. ABILIFY [Concomitant]
     Route: 048
  41. TOPAMAX [Concomitant]
     Dosage: 200 MG - 400 MG DAILY
  42. MOTRIN [Concomitant]
     Indication: PAIN
  43. TYLENOL (CAPLET) [Concomitant]
     Indication: PAIN
     Route: 048

REACTIONS (2)
  - ILL-DEFINED DISORDER [None]
  - TYPE 2 DIABETES MELLITUS [None]
